FAERS Safety Report 7871411-7 (Version None)
Quarter: 2011Q4

REPORT INFORMATION
  Report Type: 
  Country: None (occurrence: None)
  Receive Date: 20111029
  Receipt Date: 20110302
  Transmission Date: 20120403
  Serious: No
  Sender: FDA-Public Use
  Company Number: US-AMGEN-USASP2011011890

PATIENT
  Age: 12 Year
  Sex: Female

DRUGS (1)
  1. ENBREL [Suspect]
     Indication: JUVENILE ARTHRITIS
     Dosage: 25 MG, Q3WK
     Dates: start: 20060315

REACTIONS (7)
  - SEASONAL ALLERGY [None]
  - MYCOTIC ALLERGY [None]
  - MILK ALLERGY [None]
  - FOOD ALLERGY [None]
  - WEIGHT DECREASED [None]
  - DIARRHOEA [None]
  - FLATULENCE [None]
